FAERS Safety Report 7880721-9 (Version None)
Quarter: 2011Q4

REPORT INFORMATION
  Report Type: 
  Country: None (occurrence: None)
  Receive Date: 20111101
  Receipt Date: 20100519
  Transmission Date: 20120403
  Serious: No
  Sender: FDA-Public Use
  Company Number: US-BAYER-201024441NA

PATIENT
  Sex: Female

DRUGS (2)
  1. AVELOX [Suspect]
  2. AVELOX [Suspect]
     Dosage: UNK
     Route: 048

REACTIONS (2)
  - OROPHARYNGEAL BLISTERING [None]
  - URTICARIA [None]
